FAERS Safety Report 10784347 (Version 1)
Quarter: 2015Q1

REPORT INFORMATION
  Report Type: Spontaneous
  Country: US (occurrence: US)
  Receive Date: 20150211
  Receipt Date: 20150211
  Transmission Date: 20150721
  Serious: Yes (Death, Hospitalization)
  Sender: FDA-Public Use
  Company Number: US-RANBAXY-2015US-92802

PATIENT
  Age: 19 Year
  Sex: Male

DRUGS (1)
  1. METFORMIN [Suspect]
     Active Substance: METFORMIN HYDROCHLORIDE
     Indication: PRODUCT USED FOR UNKNOWN INDICATION
     Dosage: 240 DF, SINGLE
     Route: 048

REACTIONS (6)
  - Overdose [Unknown]
  - Death [Fatal]
  - Leukaemoid reaction [Unknown]
  - Condition aggravated [Unknown]
  - Bandaemia [Unknown]
  - Retching [Unknown]
